FAERS Safety Report 6248131-8 (Version None)
Quarter: 2009Q2

REPORT INFORMATION
  Report Type: 
  Country: None (occurrence: None)
  Receive Date: 20090624
  Receipt Date: 20090624
  Transmission Date: 20091009
  Serious: Yes (Hospitalization)
  Sender: FDA-Public Use
  Company Number: None

PATIENT
  Age: 54 Year
  Sex: Male
  Weight: 83 kg

DRUGS (3)
  1. CLOMIPRAMINE HCL [Suspect]
     Indication: OBSESSIVE-COMPULSIVE DISORDER
     Dosage: 75 MG PO HS
     Route: 048
     Dates: start: 20090406, end: 20090410
  2. THIORIDAZINE HCL [Concomitant]
  3. LITHIUM CARBONATE [Concomitant]

REACTIONS (1)
  - CONVULSION [None]
